FAERS Safety Report 25141874 (Version 1)
Quarter: 2025Q2

REPORT INFORMATION
  Report Type: Spontaneous
  Country: US (occurrence: None)
  Receive Date: 20250331
  Receipt Date: 20250331
  Transmission Date: 20250716
  Serious: Yes (Other)
  Sender: FDA-CTU
  Company Number: None

PATIENT
  Age: 46 Year
  Sex: Female
  Weight: 49.5 kg

DRUGS (1)
  1. UPNEEQ [Suspect]
     Active Substance: OXYMETAZOLINE HYDROCHLORIDE
     Indication: Eyelid disorder
     Route: 047
     Dates: start: 20250330, end: 20250331

REACTIONS (10)
  - Eye pain [None]
  - Eye disorder [None]
  - Eye irritation [None]
  - Eye swelling [None]
  - Vision blurred [None]
  - Vision blurred [None]
  - Loss of personal independence in daily activities [None]
  - Impaired work ability [None]
  - Eye irritation [None]
  - Emotional distress [None]

NARRATIVE: CASE EVENT DATE: 20250330
